FAERS Safety Report 10949227 (Version 1)
Quarter: 2015Q1

REPORT INFORMATION
  Report Type: Spontaneous
  Country: US (occurrence: None)
  Receive Date: 20150323
  Receipt Date: 20150323
  Transmission Date: 20150721
  Serious: Yes (Hospitalization)
  Sender: FDA-Public Use
  Company Number: None

PATIENT
  Age: 73 Year
  Sex: Male
  Weight: 84.3 kg

DRUGS (1)
  1. GEMCITABINE HYDROCHLORIDE. [Suspect]
     Active Substance: GEMCITABINE HYDROCHLORIDE
     Dates: end: 20150313

REACTIONS (12)
  - Lymphocyte count decreased [None]
  - Blood creatinine increased [None]
  - Blood albumin increased [None]
  - Bronchitis [None]
  - Nausea [None]
  - Deep vein thrombosis [None]
  - Platelet count decreased [None]
  - Pneumonia [None]
  - Vomiting [None]
  - Infection [None]
  - Fatigue [None]
  - White blood cell count decreased [None]

NARRATIVE: CASE EVENT DATE: 20150313
